FAERS Safety Report 6689313-0 (Version None)
Quarter: 2010Q2

REPORT INFORMATION
  Report Type: 
  Country: None (occurrence: None)
  Receive Date: 20100420
  Receipt Date: 20100407
  Transmission Date: 20101027
  Serious: Yes (Death)
  Sender: FDA-Public Use
  Company Number: US-ELI_LILLY_AND_COMPANY-US201004002035

PATIENT
  Sex: Male

DRUGS (3)
  1. ZYPREXA [Suspect]
     Indication: DEMENTIA
     Dosage: 5 MG, DAILY (1/D)
     Dates: start: 20070518, end: 20070521
  2. ZYPREXA [Suspect]
     Dosage: 5 MG, 2/D
  3. ASPIRIN [Concomitant]

REACTIONS (9)
  - ADVERSE EVENT [None]
  - AGGRESSION [None]
  - APHASIA [None]
  - CEREBROVASCULAR ACCIDENT [None]
  - HALLUCINATION [None]
  - INCONTINENCE [None]
  - LACUNAR INFARCTION [None]
  - OFF LABEL USE [None]
  - RESPIRATORY DISTRESS [None]
